FAERS Safety Report 7335187-4 (Version None)
Quarter: 2011Q1

REPORT INFORMATION
  Report Type: 
  Country: None (occurrence: None)
  Receive Date: 20110224
  Receipt Date: 20100125
  Transmission Date: 20110831
  Serious: Yes (Other)
  Sender: FDA-Public Use
  Company Number: 296850

PATIENT
  Age: 8 Year
  Sex: Female
  Weight: 29.3 kg

DRUGS (2)
  1. NUTROPIN AQ [Suspect]
     Indication: TURNER'S SYNDROME
     Dosage: 1.5 MG, 7/WEEK
     Dates: start: 20070416
  2. TENEX [Concomitant]

REACTIONS (1)
  - SCOLIOSIS [None]
